FAERS Safety Report 8301103-1 (Version None)
Quarter: 2012Q2

REPORT INFORMATION
  Report Type: 
  Country: None (occurrence: None)
  Receive Date: 20120420
  Receipt Date: 20120410
  Transmission Date: 20120825
  Serious: Yes (Other)
  Sender: FDA-Public Use
  Company Number: US-JNJFOC-20120306694

PATIENT

DRUGS (1)
  1. REMICADE [Suspect]
     Indication: MATERNAL DRUGS AFFECTING FOETUS
     Route: 064

REACTIONS (1)
  - PREMATURE BABY [None]
